FAERS Safety Report 8581469-8 (Version None)
Quarter: 2012Q3

REPORT INFORMATION
  Report Type: 
  Country: None (occurrence: None)
  Receive Date: 20120809
  Receipt Date: 20120725
  Transmission Date: 20120928
  Serious: Yes (Hospitalization, Other)
  Sender: FDA-Public Use
  Company Number: US-PFIZER INC-2012116877

PATIENT
  Age: 68 Year
  Sex: Female
  Weight: 84 kg

DRUGS (30)
  1. OXYCODONE [Concomitant]
     Indication: PRODUCT USED FOR UNKNOWN INDICATION
     Dosage: UNK
  2. DYAZIDE [Concomitant]
     Indication: PRODUCT USED FOR UNKNOWN INDICATION
     Dosage: UNK
  3. GABAPENTIN [Concomitant]
     Indication: PRODUCT USED FOR UNKNOWN INDICATION
     Dosage: UNK
  4. SENNA [Concomitant]
     Indication: PRODUCT USED FOR UNKNOWN INDICATION
     Dosage: UNK
  5. CLONAZEPAM [Concomitant]
     Indication: PRODUCT USED FOR UNKNOWN INDICATION
     Dosage: UNK
  6. PAROXETINE [Suspect]
     Indication: ANXIETY
     Dosage: UNK
     Route: 065
  7. WELLBUTRIN [Suspect]
     Indication: DEPRESSION
  8. OMEPRAZOLE [Concomitant]
     Indication: PRODUCT USED FOR UNKNOWN INDICATION
     Dosage: UNK
  9. PROPOFOL [Concomitant]
     Indication: ANAESTHESIA
     Dosage: 200 MG, UNK
  10. ONDANSETRON [Interacting]
     Indication: PRODUCT USED FOR UNKNOWN INDICATION
     Dosage: 4 MG, DAILY
  11. HYDROMORPHONE [Concomitant]
     Indication: PRODUCT USED FOR UNKNOWN INDICATION
     Dosage: 1 MG, UNK
  12. PAROXETINE [Suspect]
     Indication: DEPRESSION
  13. CYMBALTA [Suspect]
     Indication: DEPRESSION
  14. FENTANYL [Interacting]
     Indication: ANALGESIC THERAPY
     Dosage: 100 MCG, DAILY
     Route: 065
  15. GABITRIL [Concomitant]
     Indication: PRODUCT USED FOR UNKNOWN INDICATION
     Dosage: UNK
  16. FENTANYL [Interacting]
     Indication: ANAESTHESIA
     Dosage: 50 MCG, DAILY
     Route: 065
  17. CALCIUM [Concomitant]
     Indication: PRODUCT USED FOR UNKNOWN INDICATION
     Dosage: UNK
  18. SUCCINYLCHOLINE CHLORIDE [Concomitant]
     Indication: ANAESTHESIA
     Dosage: 120 MG, UNK
  19. FENTANYL [Interacting]
     Dosage: 100 MCG, DAILY
  20. WELLBUTRIN [Suspect]
     Indication: ANXIETY
     Dosage: UNK
     Route: 065
  21. LEVOTHYROXINE [Concomitant]
     Indication: PRODUCT USED FOR UNKNOWN INDICATION
     Dosage: UNK
  22. LISINOPRIL [Concomitant]
     Indication: PRODUCT USED FOR UNKNOWN INDICATION
     Dosage: UNK
  23. FLUDROCORTISONE [Concomitant]
     Indication: PRODUCT USED FOR UNKNOWN INDICATION
     Dosage: UNK
  24. VIGRAN [Concomitant]
     Indication: PRODUCT USED FOR UNKNOWN INDICATION
     Dosage: UNK
  25. HYDROMORPHONE [Concomitant]
     Dosage: 0.4 MG, UNK
  26. DESFLURANE [Concomitant]
     Indication: MAINTENANCE OF ANAESTHESIA
     Dosage: UNK
  27. CYMBALTA [Suspect]
     Indication: ANXIETY
     Dosage: UNK
     Route: 065
  28. LIPITOR [Concomitant]
     Indication: PRODUCT USED FOR UNKNOWN INDICATION
     Dosage: UNK
  29. FOSAMAX [Concomitant]
     Indication: PRODUCT USED FOR UNKNOWN INDICATION
     Dosage: UNK
  30. MIDAZOLAM [Concomitant]
     Indication: PREMEDICATION
     Dosage: UNK

REACTIONS (9)
  - SEROTONIN SYNDROME [None]
  - UNRESPONSIVE TO STIMULI [None]
  - APNOEIC ATTACK [None]
  - BODY TEMPERATURE INCREASED [None]
  - OXYGEN SATURATION DECREASED [None]
  - DRUG INTERACTION [None]
  - CONFUSIONAL STATE [None]
  - AGITATION [None]
  - HYPERREFLEXIA [None]
